FAERS Safety Report 19259117 (Version 1)
Quarter: 2021Q2

REPORT INFORMATION
  Report Type: Report from Study
  Country: NL (occurrence: NL)
  Receive Date: 20210514
  Receipt Date: 20210514
  Transmission Date: 20210717
  Serious: Yes (Hospitalization)
  Sender: FDA-Public Use
  Company Number: NL-AMGEN-NLDSL2021072389

PATIENT
  Sex: Male

DRUGS (1)
  1. NEULASTA [Suspect]
     Active Substance: PEGFILGRASTIM
     Indication: NEUTROPENIA
     Dosage: 0.6 MILLILITER, Q3WK
     Route: 058

REACTIONS (4)
  - Malaise [Unknown]
  - Myalgia [Unknown]
  - Bone pain [Unknown]
  - Loss of consciousness [Unknown]
